FAERS Safety Report 6757012-2 (Version None)
Quarter: 2010Q2

REPORT INFORMATION
  Report Type: 
  Country: None (occurrence: None)
  Receive Date: 20100604
  Receipt Date: 20100527
  Transmission Date: 20101027
  Serious: Yes (Hospitalization, Other)
  Sender: FDA-Public Use
  Company Number: DE-ABBOTT-10P-062-0638059-00

PATIENT
  Sex: Female
  Weight: 75 kg

DRUGS (11)
  1. HUMIRA [Suspect]
     Indication: ANKYLOSING SPONDYLITIS
     Dates: start: 20080707
  2. METHOTREXATE [Concomitant]
     Indication: DRUG USE FOR UNKNOWN INDICATION
     Dates: start: 20051101
  3. CORTISON [Concomitant]
     Indication: DRUG USE FOR UNKNOWN INDICATION
  4. ORAL CONTRACEPTIVE NOS [Concomitant]
     Indication: DRUG USE FOR UNKNOWN INDICATION
  5. FENTANYL WITHROP [Concomitant]
     Indication: DRUG USE FOR UNKNOWN INDICATION
     Dosage: 50 MCG/H
  6. HYDROMORPHONE HCL [Concomitant]
     Indication: DRUG USE FOR UNKNOWN INDICATION
  7. PALLADONE [Concomitant]
     Indication: DRUG USE FOR UNKNOWN INDICATION
  8. METEX [Concomitant]
     Indication: DRUG USE FOR UNKNOWN INDICATION
     Dosage: PARENTERAL PER WEEK
     Route: 050
  9. FOLIC ACID [Concomitant]
     Indication: DRUG USE FOR UNKNOWN INDICATION
     Dosage: OPD ON DAY 1 TO 4 POST METEX
  10. DIPYRONE TAB [Concomitant]
     Indication: DRUG USE FOR UNKNOWN INDICATION
     Dosage: IF REQUIRED
  11. TELFAST [Concomitant]
     Indication: URTICARIA

REACTIONS (1)
  - ANKYLOSING SPONDYLITIS [None]
